FAERS Safety Report 9563340 (Version 2)
Quarter: 2013Q4

REPORT INFORMATION
  Report Type: Spontaneous
  Country: US (occurrence: US)
  Receive Date: 20130927
  Receipt Date: 20131007
  Transmission Date: 20140711
  Serious: Yes (Other)
  Sender: FDA-Public Use
  Company Number: US-TEVA-434834USA

PATIENT
  Sex: Female

DRUGS (1)
  1. PARAGARD 380A [Suspect]
     Indication: CONTRACEPTION
     Route: 015

REACTIONS (5)
  - Embedded device [Unknown]
  - Muscle spasms [Unknown]
  - Discomfort [Unknown]
  - Complication of device removal [Unknown]
  - Device breakage [Unknown]
